FAERS Safety Report 18223128 (Version 1)
Quarter: 2020Q3

REPORT INFORMATION
  Report Type: Spontaneous
  Country: US (occurrence: US)
  Receive Date: 20200902
  Receipt Date: 20200902
  Transmission Date: 20201103
  Serious: Yes (Other)
  Sender: FDA-Public Use
  Company Number: None

PATIENT
  Age: 38 Year
  Sex: Female
  Weight: 60.75 kg

DRUGS (4)
  1. DIPHENHYDRAMINE 25 MG IV PUSH [Concomitant]
     Dates: start: 20200821, end: 20200821
  2. ONDANSETRON 4 MG IV PUSH [Concomitant]
     Dates: start: 20200821, end: 20200821
  3. ACETAMINOPHEN 650 MG PO [Concomitant]
     Dates: start: 20200821, end: 20200821
  4. OCREVUS [Suspect]
     Active Substance: OCRELIZUMAB
     Indication: MULTIPLE SCLEROSIS
     Dosage: ?          OTHER FREQUENCY:Q2W,THEN 600MG Q6M;?
     Route: 042
     Dates: start: 20200821, end: 20200821

REACTIONS (5)
  - Blood pressure decreased [None]
  - Presyncope [None]
  - Pharyngeal paraesthesia [None]
  - Infusion related reaction [None]
  - Pruritus [None]

NARRATIVE: CASE EVENT DATE: 20200821
